FAERS Safety Report 16790174 (Version 1)
Quarter: 2019Q3

REPORT INFORMATION
  Report Type: Spontaneous
  Country: IE (occurrence: IE)
  Receive Date: 20190910
  Receipt Date: 20190910
  Transmission Date: 20191005
  Serious: Yes (Other)
  Sender: FDA-Public Use
  Company Number: IE-MYLANLABS-2019M1083604

PATIENT
  Age: 67 Year
  Sex: Male

DRUGS (2)
  1. OLANZAPINE. [Suspect]
     Active Substance: OLANZAPINE
     Indication: BIPOLAR DISORDER
     Dosage: 20 MILLIGRAM, QD
     Route: 048
  2. EPILIM [Interacting]
     Active Substance: VALPROATE SODIUM
     Indication: BIPOLAR DISORDER
     Dosage: 1200 MILLIGRAM, QD (1200MG OD AT NIGHT)
     Route: 048
     Dates: start: 2017

REACTIONS (5)
  - Arthritis [Not Recovered/Not Resolved]
  - Balance disorder [Not Recovered/Not Resolved]
  - Drug interaction [Not Recovered/Not Resolved]
  - Bone disorder [Not Recovered/Not Resolved]
  - Headache [Not Recovered/Not Resolved]
